FAERS Safety Report 18276074 (Version 1)
Quarter: 2020Q3

REPORT INFORMATION
  Report Type: Spontaneous
  Country: None (occurrence: US)
  Receive Date: 20200916
  Receipt Date: 20200916
  Transmission Date: 20201103
  Serious: No
  Sender: FDA-Public Use
  Company Number: US-JIANGSU HENGRUI MEDICINE CO., LTD.-2090825

PATIENT
  Age: 67 Year
  Sex: Female

DRUGS (3)
  1. CYCLOPHOSPHAMIDE, DOXORUBICIN HYDROCHLORIDE, ETOPOSIDE, PREDNISONE, RI (DA?EPOCH?R) [Suspect]
     Active Substance: CYCLOPHOSPHAMIDE\DOXORUBICIN\ETOPOSIDE\PREDNISONE\RITUXIMAB\VINCRISTINE
  2. CYCLOPHOSPHAMIDE, DOXORUBICIN HYDROCHLORIDE, ETOPOSIDE, PREDNISONE, RI (DA?EPOCH?R) [Suspect]
     Active Substance: CYCLOPHOSPHAMIDE\DOXORUBICIN\ETOPOSIDE\PREDNISONE\RITUXIMAB\VINCRISTINE
  3. CYCLOPHOSPHAMIDE FOR INJECTION USP, 500 MG, 1 G AND 2 G PER SINGLE?DOS [Suspect]
     Active Substance: CYCLOPHOSPHAMIDE
     Indication: DIFFUSE LARGE B-CELL LYMPHOMA REFRACTORY

REACTIONS (2)
  - Drug intolerance [Unknown]
  - Neoplasm progression [Unknown]
